FAERS Safety Report 6226812-X (Version None)
Quarter: 2009Q2

REPORT INFORMATION
  Report Type: 
  Country: None (occurrence: None)
  Receive Date: 20090612
  Receipt Date: 20090527
  Transmission Date: 20091009
  Serious: No
  Sender: FDA-Public Use
  Company Number: US-ABBOTT-09P-163-0575471-00

PATIENT
  Sex: Female
  Weight: 102.15 kg

DRUGS (5)
  1. HUMIRA [Suspect]
     Indication: PSORIATIC ARTHROPATHY
     Route: 058
     Dates: start: 20080101, end: 20080101
  2. LISINOPRIL [Concomitant]
     Indication: HYPERTENSION
     Route: 048
  3. UNKNOWN STATIN [Concomitant]
     Indication: BLOOD CHOLESTEROL
     Route: 048
  4. CELEBREX [Concomitant]
     Indication: PSORIATIC ARTHROPATHY
     Route: 048
  5. METHOTREXATE [Concomitant]
     Indication: PSORIATIC ARTHROPATHY
     Route: 048

REACTIONS (1)
  - PAIN [None]
